FAERS Safety Report 5834097-9 (Version None)
Quarter: 2008Q3

REPORT INFORMATION
  Report Type: 
  Country: None (occurrence: None)
  Receive Date: 20080805
  Receipt Date: 20080728
  Transmission Date: 20090109
  Serious: Yes (Death, Other)
  Sender: FDA-Public Use
  Company Number: US-TEVA-175296USA

PATIENT
  Age: 39 Year
  Sex: Female

DRUGS (8)
  1. DAUNORUBICIN HYDROCHLORIDE 20MG BASE/10ML, 50MG BASE/20ML [Suspect]
     Indication: ACUTE MYELOID LEUKAEMIA RECURRENT
  2. ETOPOSIDE [Suspect]
     Indication: ACUTE MYELOID LEUKAEMIA RECURRENT
  3. MITOXANTRONE [Suspect]
     Indication: ACUTE MYELOID LEUKAEMIA RECURRENT
  4. TACROLIMUS [Suspect]
  5. CYTARABINE [Suspect]
     Indication: ACUTE MYELOID LEUKAEMIA RECURRENT
  6. ASPARAGINASE [Suspect]
     Indication: ACUTE MYELOID LEUKAEMIA RECURRENT
  7. CYCLOPHOSPHAMIDE [Suspect]
     Indication: ACUTE MYELOID LEUKAEMIA RECURRENT
     Dosage: 60 MG/KG/DAY
  8. METHOTREXATE [Suspect]

REACTIONS (2)
  - GUILLAIN-BARRE SYNDROME [None]
  - LEUKAEMIA [None]
